FAERS Safety Report 11441416 (Version 1)
Quarter: 2015Q3

REPORT INFORMATION
  Report Type: Spontaneous
  Country: US (occurrence: US)
  Receive Date: 20150901
  Receipt Date: 20150901
  Transmission Date: 20151125
  Serious: Yes (Hospitalization)
  Sender: FDA-Public Use
  Company Number: US-UNITED THERAPEUTICS-UNT-2015-008937

PATIENT
  Age: 27 Year
  Sex: Female
  Weight: 55.33 kg

DRUGS (5)
  1. REMODULIN [Suspect]
     Active Substance: TREPROSTINIL
     Indication: PULMONARY HYPERTENSION
     Dosage: 0.085 ?G/KG, CONTINUING
     Route: 041
     Dates: start: 20061207
  2. ADCIRCA [Concomitant]
     Active Substance: TADALAFIL
     Indication: PRODUCT USED FOR UNKNOWN INDICATION
  3. REMODULIN [Suspect]
     Active Substance: TREPROSTINIL
     Dosage: 0.044 ?G/KG, CONTINUING
     Route: 041
     Dates: start: 20150417
  4. REMODULIN [Suspect]
     Active Substance: TREPROSTINIL
     Dosage: 0.085 ?G/KG, CONTINUING
     Route: 041
     Dates: start: 201505
  5. LETAIRIS [Concomitant]
     Active Substance: AMBRISENTAN
     Indication: PRODUCT USED FOR UNKNOWN INDICATION

REACTIONS (7)
  - Device related sepsis [Unknown]
  - Vomiting [Unknown]
  - Dehydration [Unknown]
  - Dyspnoea exertional [Unknown]
  - Nausea [Unknown]
  - Device related infection [Unknown]
  - Malaise [Unknown]

NARRATIVE: CASE EVENT DATE: 201507
